FAERS Safety Report 8112047-2 (Version None)
Quarter: 2012Q1

REPORT INFORMATION
  Report Type: 
  Country: None (occurrence: None)
  Receive Date: 20120203
  Receipt Date: 20120126
  Transmission Date: 20120608
  Serious: Yes (Life-Threatening)
  Sender: FDA-Public Use
  Company Number: AR-JNJFOC-20120111925

PATIENT
  Sex: Male
  Weight: 82.5 kg

DRUGS (14)
  1. GOLIMUMAB [Suspect]
     Indication: RHEUMATOID ARTHRITIS
     Route: 058
     Dates: start: 20061206
  2. RANITIDINE [Concomitant]
     Route: 048
     Dates: start: 20040101
  3. TAMSULOSIN HCL [Concomitant]
     Route: 048
     Dates: start: 20080205
  4. VITAMIN D [Concomitant]
     Route: 048
     Dates: start: 20090128
  5. METHOTREXATE [Suspect]
     Indication: RHEUMATOID ARTHRITIS
     Route: 048
     Dates: start: 20071211, end: 20080520
  6. DICLOFENAC [Concomitant]
     Route: 048
     Dates: start: 20040401
  7. PREDNISONE TAB [Concomitant]
     Route: 048
     Dates: start: 20060325
  8. FLUCONAZOLE [Concomitant]
     Route: 048
     Dates: start: 20091101
  9. ERGOCALCIFEROL [Concomitant]
     Route: 048
     Dates: start: 20091230
  10. FOLIC ACID [Concomitant]
     Route: 048
     Dates: start: 20040203
  11. IBANDRONATE SODIUM [Concomitant]
     Route: 048
     Dates: start: 20110713
  12. GOLIMUMAB [Suspect]
     Route: 058
     Dates: start: 20111005
  13. LEVOTHYROXINE SODIUM [Concomitant]
     Dates: start: 19980101
  14. METHOTREXATE [Concomitant]
     Route: 048
     Dates: start: 20080521

REACTIONS (1)
  - PROSTATE CANCER [None]
